FAERS Safety Report 6908037-5 (Version None)
Quarter: 2010Q3

REPORT INFORMATION
  Report Type: 
  Country: None (occurrence: None)
  Receive Date: 20100720
  Receipt Date: 20090629
  Transmission Date: 20110219
  Serious: No
  Sender: FDA-Public Use
  Company Number: 2009-00290

PATIENT
  Sex: Male

DRUGS (5)
  1. ZICAM COLD REMEDY GEL SWABS [Suspect]
     Dosage: SPORADIC, COUPLE OF XS
     Dates: start: 20040101
  2. ZICAM COLD REMEDY NASAL GEL [Suspect]
     Dosage: SPORADIC, FOR ONE COLD
     Dates: start: 20081201, end: 20081201
  3. TAMSULOSIN HYDROCHLORIDE [Concomitant]
  4. ASPIRIN [Concomitant]
  5. ASPIRIN [Concomitant]

REACTIONS (1)
  - ANOSMIA [None]
